FAERS Safety Report 20561850 (Version 1)
Quarter: 2022Q1

REPORT INFORMATION
  Report Type: Spontaneous
  Country: US (occurrence: None)
  Receive Date: 20220307
  Receipt Date: 20220307
  Transmission Date: 20220423
  Serious: No
  Sender: FDA-Public Use
  Company Number: None

PATIENT
  Age: 59 Year
  Sex: Female
  Weight: 72.57 kg

DRUGS (1)
  1. BUPRENORPHINE\NALOXONE [Suspect]
     Active Substance: BUPRENORPHINE\NALOXONE
     Dosage: OTHER STRENGTH : 8MG-2MG;?OTHER QUANTITY : 1-2 TABS;?OTHER FREQUENCY : 1-2 TIMES A DAY;?
     Dates: start: 2020

REACTIONS (3)
  - Drug intolerance [None]
  - Asthenia [None]
  - Migraine [None]
